FAERS Safety Report 6615150-9 (Version None)
Quarter: 2010Q1

REPORT INFORMATION
  Report Type: 
  Country: None (occurrence: None)
  Receive Date: 20100305
  Receipt Date: 20100222
  Transmission Date: 20100710
  Serious: Yes (Hospitalization)
  Sender: FDA-Public Use
  Company Number: CL-JNJFOC-20100209702

PATIENT
  Sex: Male
  Weight: 75 kg

DRUGS (12)
  1. GOLIMUMAB [Suspect]
     Indication: RHEUMATOID ARTHRITIS
     Route: 058
  2. GOLIMUMAB [Suspect]
     Route: 058
  3. METHOTREXATE [Suspect]
     Indication: RHEUMATOID ARTHRITIS
     Route: 048
  4. CALCIUM CARBONATE [Concomitant]
     Route: 048
  5. PREDNISONE [Concomitant]
     Route: 048
  6. ENALAPRIL MALEATE [Concomitant]
  7. AMITRIPTYLINE HCL [Concomitant]
     Route: 048
  8. OMEPRAZOLE [Concomitant]
     Route: 048
  9. FOLIC ACID [Concomitant]
     Route: 048
  10. ALLOPURINOL [Concomitant]
     Route: 048
  11. AMOXICILLIN [Concomitant]
     Route: 048
  12. METHOTREXATE [Concomitant]
     Route: 048

REACTIONS (1)
  - GASTROENTERITIS [None]
